FAERS Safety Report 5246830-8 (Version None)
Quarter: 2007Q1

REPORT INFORMATION
  Report Type: 
  Country: None (occurrence: None)
  Receive Date: 20070226
  Receipt Date: 20061122
  Transmission Date: 20070707
  Serious: Yes (Hospitalization)
  Sender: FDA-Public Use
  Company Number: AU-PFIZER INC-2007013643

PATIENT
  Sex: Female

DRUGS (8)
  1. SILDENAFIL (PAH) [Suspect]
     Indication: PULMONARY HYPERTENSION
  2. EPOPROSTENOL SODIUM [Concomitant]
  3. PANTOPRAZOLE SODIUM [Concomitant]
  4. BURINEX [Concomitant]
  5. ALDACTONE [Concomitant]
  6. SPAN-K [Concomitant]
  7. WARFARIN SODIUM [Concomitant]
  8. SERTRALINE [Concomitant]

REACTIONS (1)
  - CATHETER PLACEMENT [None]
